FAERS Safety Report 9759865 (Version 1)
Quarter: 2013Q4

REPORT INFORMATION
  Report Type: Spontaneous
  Country: DE (occurrence: DE)
  Receive Date: 20131216
  Receipt Date: 20131216
  Transmission Date: 20140711
  Serious: Yes (Hospitalization)
  Sender: FDA-Public Use
  Company Number: DE-MYLANLABS-2013S1027412

PATIENT
  Age: 62 Year
  Sex: Male

DRUGS (4)
  1. FLUOROURACIL [Suspect]
     Indication: RECTAL CANCER METASTATIC
     Dosage: 2000MG/M2 OVER 24HOUR INFUSION EVERY 2ND WEEK
     Route: 050
  2. FOLINIC ACID [Suspect]
     Indication: RECTAL CANCER METASTATIC
     Dosage: 500MG/M2 OVER 24-HOUR INFUSION EVERY SECOND WEEK
     Route: 050
  3. OXALIPLATIN [Suspect]
     Indication: RECTAL CANCER METASTATIC
     Dosage: 85MG/M2 EVERY SECOND WEEK
     Route: 065
  4. PHENPROCOUMON [Concomitant]
     Indication: ATRIAL FIBRILLATION
     Route: 065

REACTIONS (1)
  - Pulmonary granuloma [Recovering/Resolving]
